FAERS Safety Report 6024190-2 (Version None)
Quarter: 2008Q4

REPORT INFORMATION
  Report Type: 
  Country: None (occurrence: None)
  Receive Date: 20081224
  Receipt Date: 20081218
  Transmission Date: 20090506
  Serious: Yes (Death, Life-Threatening, Hospitalization)
  Sender: FDA-Public Use
  Company Number: US025192

PATIENT
  Age: 57 Year
  Sex: Male
  Weight: 81.1939 kg

DRUGS (2)
  1. TREANDA [Suspect]
     Indication: CHRONIC LYMPHOCYTIC LEUKAEMIA
     Dosage: 200 MG QD INTRAVENOUS
     Route: 042
     Dates: start: 20081006, end: 20081007
  2. ALLOPURINOL [Concomitant]

REACTIONS (17)
  - ATELECTASIS [None]
  - BLOOD CHLORIDE INCREASED [None]
  - BLOOD GLUCOSE INCREASED [None]
  - BLOOD PRESSURE SYSTOLIC INCREASED [None]
  - BLOOD SODIUM INCREASED [None]
  - BODY TEMPERATURE INCREASED [None]
  - CHOLELITHIASIS [None]
  - COLITIS [None]
  - HYPOALBUMINAEMIA [None]
  - HYPOTENSION [None]
  - RENAL FAILURE [None]
  - SPLENOMEGALY [None]
  - STAPHYLOCOCCAL BACTERAEMIA [None]
  - STEVENS-JOHNSON SYNDROME [None]
  - TACHYCARDIA [None]
  - URINARY TRACT INFECTION PSEUDOMONAL [None]
  - WEIGHT DECREASED [None]
